FAERS Safety Report 25942988 (Version 1)
Quarter: 2025Q4

REPORT INFORMATION
  Report Type: Spontaneous
  Country: US (occurrence: None)
  Receive Date: 20251020
  Receipt Date: 20251020
  Transmission Date: 20260118
  Serious: Yes (Hospitalization)
  Sender: FDA-CTU
  Company Number: None

PATIENT
  Age: 34 Year
  Sex: Female

DRUGS (4)
  1. FLUOXETINE [Suspect]
     Active Substance: FLUOXETINE HYDROCHLORIDE
     Indication: Obsessive-compulsive disorder
     Dosage: FREQUENCY : DAILY;?
     Route: 048
     Dates: start: 20250918, end: 20251013
  2. BUPROPION [Concomitant]
     Active Substance: BUPROPION
     Dates: start: 20240101
  3. LAMOTRIGINE [Concomitant]
     Active Substance: LAMOTRIGINE
     Dates: start: 20240101
  4. TIRZEPATIDE [Concomitant]
     Active Substance: TIRZEPATIDE
     Dates: start: 20250601

REACTIONS (2)
  - Postural orthostatic tachycardia syndrome [None]
  - COVID-19 [None]

NARRATIVE: CASE EVENT DATE: 20251013
